FAERS Safety Report 25805669 (Version 1)
Quarter: 2025Q3

REPORT INFORMATION
  Report Type: Spontaneous
  Country: TN (occurrence: TN)
  Receive Date: 20250916
  Receipt Date: 20250916
  Transmission Date: 20251021
  Serious: Yes (Other)
  Sender: ROCHE
  Company Number: TN-ROCHE-10000386900

PATIENT
  Sex: Female

DRUGS (3)
  1. ERIVEDGE [Suspect]
     Active Substance: VISMODEGIB
     Indication: Product used for unknown indication
     Route: 065
     Dates: end: 202412
  2. Serval [Concomitant]
  3. OXAZEPAM [Concomitant]
     Active Substance: OXAZEPAM

REACTIONS (3)
  - Dementia Alzheimer^s type [Unknown]
  - Agitation [Unknown]
  - Epilepsy [Unknown]

NARRATIVE: CASE EVENT DATE: 20250801
